FAERS Safety Report 5097372-4 (Version None)
Quarter: 2006Q3

REPORT INFORMATION
  Report Type: 
  Country: None (occurrence: None)
  Receive Date: 20060901
  Receipt Date: 20060816
  Transmission Date: 20061208
  Serious: Yes (Hospitalization)
  Sender: FDA-Public Use
  Company Number: DSA_28484_2006

PATIENT
  Age: 22 Year
  Sex: Female

DRUGS (2)
  1. TAVOR                     /00273201/ [Suspect]
     Dosage: 25 MG ONCE PO
     Route: 048
     Dates: start: 20060711, end: 20060711
  2. VIVINOX SCHLAFDRAGEES [Suspect]
     Dosage: 500 MG ONCE PO
     Route: 048
     Dates: start: 20060711, end: 20060711

REACTIONS (4)
  - OVERDOSE [None]
  - SOMNOLENCE [None]
  - SUICIDE ATTEMPT [None]
  - TACHYCARDIA [None]
